FAERS Safety Report 4974711-3 (Version None)
Quarter: 2006Q2

REPORT INFORMATION
  Report Type: 
  Country: None (occurrence: None)
  Receive Date: 20060417
  Receipt Date: 20050321
  Transmission Date: 20061013
  Serious: Yes (Hospitalization)
  Sender: FDA-Public Use
  Company Number: US-MERCK-0503USA03558

PATIENT
  Age: 78 Year
  Sex: Male
  Weight: 84 kg

DRUGS (3)
  1. VIOXX [Suspect]
     Indication: ARTHRALGIA
     Route: 048
     Dates: start: 19991201, end: 20030101
  2. VIOXX [Suspect]
     Route: 048
     Dates: start: 19991201, end: 20030101
  3. ASPIRIN [Concomitant]
     Route: 065

REACTIONS (14)
  - ANGINA UNSTABLE [None]
  - ARTERIOSCLEROSIS [None]
  - ATRIAL FIBRILLATION [None]
  - BUNDLE BRANCH BLOCK RIGHT [None]
  - CAROTID ARTERY STENOSIS [None]
  - CORONARY ARTERY DISEASE [None]
  - CORONARY ARTERY INSUFFICIENCY [None]
  - CORONARY ARTERY RESTENOSIS [None]
  - DIZZINESS [None]
  - HYPERCHOLESTEROLAEMIA [None]
  - MYASTHENIA GRAVIS [None]
  - MYOCARDIAL ISCHAEMIA [None]
  - SYNCOPE [None]
  - VENTRICULAR DYSFUNCTION [None]
